FAERS Safety Report 15547435 (Version 1)
Quarter: 2018Q4

REPORT INFORMATION
  Report Type: Spontaneous
  Country: CL (occurrence: CL)
  Receive Date: 20181024
  Receipt Date: 20181024
  Transmission Date: 20190205
  Serious: Yes (Disabling, Other)
  Sender: FDA-Public Use
  Company Number: CL-MYLANLABS-2018M1077242

PATIENT
  Age: 6 Decade
  Sex: Female

DRUGS (2)
  1. HYDROXYCHLOROQUINE [Suspect]
     Active Substance: HYDROXYCHLOROQUINE
     Indication: RHEUMATOID ARTHRITIS
     Dosage: 200 MG, QD
     Route: 065
     Dates: start: 1993
  2. HYDROXYCHLOROQUINE [Suspect]
     Active Substance: HYDROXYCHLOROQUINE
     Dosage: THEN CONTINUED IN AN UNSPECIFIED DOSAGE AFTER 2011
     Route: 065

REACTIONS (3)
  - Visual acuity reduced [Unknown]
  - Night blindness [Unknown]
  - Vitreous floaters [Unknown]
